FAERS Safety Report 25691460 (Version 1)
Quarter: 2025Q3

REPORT INFORMATION
  Report Type: Spontaneous
  Country: US (occurrence: US)
  Receive Date: 20250818
  Receipt Date: 20250818
  Transmission Date: 20251021
  Serious: Yes (Other)
  Sender: AMGEN
  Company Number: US-AMGEN-USASP2025161339

PATIENT

DRUGS (2)
  1. PREDNISONE [Suspect]
     Active Substance: PREDNISONE
     Indication: Immunosuppressant drug therapy
     Route: 065
  2. BELATACEPT [Concomitant]
     Active Substance: BELATACEPT
     Indication: Immunosuppressant drug therapy
     Dosage: UNK, QMO, MONTHLY DOSE

REACTIONS (5)
  - Kidney transplant rejection [Unknown]
  - Donor specific antibody present [Unknown]
  - Cytomegalovirus infection [Unknown]
  - Human polyomavirus infection [Unknown]
  - Infection [Unknown]
